FAERS Safety Report 9820544 (Version 1)
Quarter: 2014Q1

REPORT INFORMATION
  Report Type: Spontaneous
  Country: US (occurrence: US)
  Receive Date: 20140116
  Receipt Date: 20140116
  Transmission Date: 20141002
  Serious: Yes (Hospitalization)
  Sender: FDA-Public Use
  Company Number: US-B.I. PHARMACEUTICALS,INC./RIDGEFIELD-2014-BI-01615BP

PATIENT
  Age: 51 Year
  Sex: Male
  Weight: 73 kg

DRUGS (9)
  1. SPIRIVA [Suspect]
     Indication: CHRONIC OBSTRUCTIVE PULMONARY DISEASE
     Dosage: 18 MCG
     Route: 055
     Dates: start: 2012
  2. ALBUTEROL AS NEEDED [Concomitant]
     Route: 055
  3. ADVAIR [Concomitant]
     Dosage: 2 PUF
     Route: 055
  4. LISINOPRIL [Concomitant]
     Indication: HYPERTENSION
     Dosage: 1 ANZ
     Route: 048
  5. EFFEXOR [Concomitant]
     Indication: INSOMNIA
     Dosage: 225 MG
     Route: 048
  6. EFFEXOR [Concomitant]
     Indication: DEPRESSION
  7. GABAPENTIN [Concomitant]
     Indication: PAIN
     Dosage: 3 ANZ
     Route: 048
  8. PERCOCET [Concomitant]
     Indication: PAIN
     Route: 048
  9. BAYER ASPIRIN [Concomitant]
     Indication: CARDIAC DISORDER
     Dosage: 325 MG
     Route: 048

REACTIONS (9)
  - Chronic obstructive pulmonary disease [Recovered/Resolved]
  - Bronchitis [Recovered/Resolved]
  - Weight decreased [Not Recovered/Not Resolved]
  - Back pain [Not Recovered/Not Resolved]
  - Dyspnoea exertional [Not Recovered/Not Resolved]
  - Prostatomegaly [Not Recovered/Not Resolved]
  - Disability [Not Recovered/Not Resolved]
  - Oxygen saturation decreased [Not Recovered/Not Resolved]
  - Muscular weakness [Not Recovered/Not Resolved]
